FAERS Safety Report 25886806 (Version 1)
Quarter: 2025Q4

REPORT INFORMATION
  Report Type: Spontaneous
  Country: US (occurrence: US)
  Receive Date: 20251006
  Receipt Date: 20251006
  Transmission Date: 20260119
  Serious: No
  Sender: ASCENDIS PHARMA
  Company Number: US-ASCENDIS PHARMA-2024US006015

PATIENT

DRUGS (2)
  1. SKYTROFA [Suspect]
     Active Substance: LONAPEGSOMATROPIN-TCGD
     Indication: Growth hormone deficiency
     Dosage: TAKE 2 CARTIDGES TO EQUAL 22MG, ONCE WEEKLY
     Route: 058
     Dates: start: 20240417
  2. ANASTROZOLE [Concomitant]
     Active Substance: ANASTROZOLE
     Indication: Product used for unknown indication
     Dosage: UNK, ONCE DAILY

REACTIONS (2)
  - Wrong technique in device usage process [Unknown]
  - No adverse event [Unknown]

NARRATIVE: CASE EVENT DATE: 20240717
